FAERS Safety Report 8820312 (Version 5)
Quarter: 2013Q2

REPORT INFORMATION
  Report Type: Spontaneous
  Country: US (occurrence: US)
  Receive Date: 20121002
  Receipt Date: 20130417
  Transmission Date: 20140414
  Serious: No
  Sender: FDA-Public Use
  Company Number: US-009507513-1210USA000009

PATIENT
  Age: 17 Year
  Sex: Female
  Weight: 57.6 kg

DRUGS (2)
  1. NEXPLANON [Suspect]
     Indication: CONTRACEPTION
     Dosage: 1 DF, UNK
     Route: 059
     Dates: start: 20120716
  2. ABILIFY [Concomitant]

REACTIONS (3)
  - Device dislocation [Unknown]
  - Implant site pain [Recovered/Resolved]
  - Menorrhagia [Recovered/Resolved]
